FAERS Safety Report 18469854 (Version 8)
Quarter: 2022Q4

REPORT INFORMATION
  Report Type: Report from Study
  Country: US (occurrence: US)
  Receive Date: 20201105
  Receipt Date: 20221230
  Transmission Date: 20230112
  Serious: Yes (Other)
  Sender: FDA-Public Use
  Company Number: US-SHIRE-US202003279

PATIENT
  Sex: Male
  Weight: 79 kg

DRUGS (22)
  1. HUMAN IMMUNOGLOBULIN G\HYALURONIDASE RECOMBINANT HUMAN [Suspect]
     Active Substance: HUMAN IMMUNOGLOBULIN G\HYALURONIDASE RECOMBINANT HUMAN
     Indication: Immunodeficiency common variable
     Dosage: 45 GRAM, Q4WEEKS
     Route: 058
     Dates: start: 20191031
  2. DIPHENHYDRAMINE [Concomitant]
     Active Substance: DIPHENHYDRAMINE
  3. ALBUTEROL [Concomitant]
     Active Substance: ALBUTEROL
  4. ATROVENT [Concomitant]
     Active Substance: IPRATROPIUM BROMIDE
  5. HYDROXYZINE HYDROCHLORIDE [Concomitant]
     Active Substance: HYDROXYZINE HYDROCHLORIDE
  6. EPINEPHRINE [Concomitant]
     Active Substance: EPINEPHRINE
  7. LISINOPRIL [Concomitant]
     Active Substance: LISINOPRIL
  8. BUSPIRONE HCL [Concomitant]
     Active Substance: BUSPIRONE HYDROCHLORIDE
  9. FLUTICASONE PROPIONATE [Concomitant]
     Active Substance: FLUTICASONE PROPIONATE
  10. IBUPROFEN [Concomitant]
     Active Substance: IBUPROFEN
  11. TOVIAZ [Concomitant]
     Active Substance: FESOTERODINE FUMARATE
  12. ACETAMINOPHEN [Concomitant]
     Active Substance: ACETAMINOPHEN
  13. SINGULAIR [Concomitant]
     Active Substance: MONTELUKAST SODIUM
  14. LORATADINE [Concomitant]
     Active Substance: LORATADINE
  15. SEROQUEL XR [Concomitant]
     Active Substance: QUETIAPINE FUMARATE
  16. SODIUM CHLORIDE [Concomitant]
     Active Substance: SODIUM CHLORIDE
  17. TENORMIN [Concomitant]
     Active Substance: ATENOLOL
  18. NORVASC [Concomitant]
     Active Substance: AMLODIPINE BESYLATE
  19. FLOMAX [Concomitant]
     Active Substance: TAMSULOSIN HYDROCHLORIDE
  20. OMEPRAZOLE [Concomitant]
     Active Substance: OMEPRAZOLE
  21. Lmx [Concomitant]
  22. SYMBICORT [Concomitant]
     Active Substance: BUDESONIDE\FORMOTEROL FUMARATE DIHYDRATE

REACTIONS (14)
  - Bladder cancer recurrent [Not Recovered/Not Resolved]
  - Prostate cancer [Unknown]
  - Burning sensation [Unknown]
  - Splenomegaly [Unknown]
  - Pain [Unknown]
  - Condition aggravated [Unknown]
  - Bronchitis [Unknown]
  - Meniscus injury [Unknown]
  - Foot fracture [Unknown]
  - Diarrhoea [Unknown]
  - Nausea [Unknown]
  - Fatigue [Unknown]
  - Non-pitting oedema [Unknown]
  - Oedema peripheral [Unknown]
